FAERS Safety Report 6021079-X (Version None)
Quarter: 2008Q4

REPORT INFORMATION
  Report Type: 
  Country: None (occurrence: None)
  Receive Date: 20081229
  Receipt Date: 20081217
  Transmission Date: 20090506
  Serious: Yes (Other)
  Sender: FDA-Public Use
  Company Number: US-PFIZER INC-2008099525

PATIENT
  Sex: Male

DRUGS (3)
  1. ATENOLOL [Suspect]
  2. VALSARTAN [Suspect]
  3. ALTACE [Suspect]

REACTIONS (1)
  - DRUG INEFFECTIVE [None]
